FAERS Safety Report 6717002-2 (Version None)
Quarter: 2010Q2

REPORT INFORMATION
  Report Type: 
  Country: None (occurrence: None)
  Receive Date: 20100510
  Receipt Date: 20100430
  Transmission Date: 20101027
  Serious: Yes (Hospitalization)
  Sender: FDA-Public Use
  Company Number: FR-JNJFOC-20100500506

PATIENT
  Sex: Male

DRUGS (10)
  1. RISPERDAL [Suspect]
     Indication: DRUG USE FOR UNKNOWN INDICATION
     Route: 048
  2. HALDOL [Suspect]
     Indication: ABNORMAL BEHAVIOUR
     Route: 048
  3. LEPTICUR [Suspect]
     Indication: ABNORMAL BEHAVIOUR
     Route: 048
  4. IXPRIM [Suspect]
     Route: 065
  5. PRACTAZIN [Concomitant]
     Route: 065
  6. KERLONE [Concomitant]
     Route: 065
  7. PLAVIX [Concomitant]
     Route: 065
  8. DIAMICRON [Concomitant]
     Route: 065
  9. CHONDROSULF [Concomitant]
     Route: 065
  10. NIASPAN [Concomitant]
     Route: 065

REACTIONS (5)
  - CONFUSIONAL STATE [None]
  - DIABETES MELLITUS INADEQUATE CONTROL [None]
  - DYSPHAGIA [None]
  - EXTRAPYRAMIDAL DISORDER [None]
  - FALL [None]
